FAERS Safety Report 18201819 (Version 1)
Quarter: 2020Q3

REPORT INFORMATION
  Report Type: Other
  Country: US (occurrence: US)
  Receive Date: 20200827
  Receipt Date: 20200827
  Transmission Date: 20201103
  Serious: No
  Sender: FDA-Public Use
  Company Number: US-ROCHE-2521268

PATIENT
  Sex: Female

DRUGS (2)
  1. OCREVUS [Suspect]
     Active Substance: OCRELIZUMAB
     Indication: PRIMARY PROGRESSIVE MULTIPLE SCLEROSIS
     Dosage: DATE OF TREATMENT : 28/DEC/2017 AND 28/JUN/2018
     Route: 042
     Dates: start: 20171214
  2. OCREVUS [Suspect]
     Active Substance: OCRELIZUMAB
     Dosage: INFUSION; 300 MG VIAL?DATE OF TREATMENT 09/JAN/2020 AND 09/JUL/2020
     Route: 042

REACTIONS (1)
  - Influenza [Unknown]
